FAERS Safety Report 10641761 (Version 1)
Quarter: 2014Q4

REPORT INFORMATION
  Report Type: Spontaneous
  Country: US (occurrence: US)
  Receive Date: 20141209
  Receipt Date: 20141209
  Transmission Date: 20150529
  Serious: No
  Sender: FDA-Public Use
  Company Number: US-PFIZER INC-2014333459

PATIENT

DRUGS (1)
  1. ZITHROMAX [Suspect]
     Active Substance: AZITHROMYCIN DIHYDRATE
     Indication: SEXUALLY TRANSMITTED DISEASE
     Dosage: UNK

REACTIONS (2)
  - Gastrointestinal tract irritation [Unknown]
  - Wrong technique in drug usage process [Unknown]
